FAERS Safety Report 20965068 (Version 1)
Quarter: 2022Q2

REPORT INFORMATION
  Report Type: Other
  Country: None (occurrence: US)
  Receive Date: 20220616
  Receipt Date: 20220616
  Transmission Date: 20220721
  Serious: Yes (Other)
  Sender: FDA-Public Use
  Company Number: US-P+L Developments of Newyork Corporation-2129952

PATIENT
  Age: 62 Year
  Sex: Male

DRUGS (2)
  1. NICOTINE POLACRILEX [Suspect]
     Active Substance: NICOTINE
     Indication: Product used for unknown indication
     Route: 065
  2. CLONAZEPAM [Suspect]
     Active Substance: CLONAZEPAM
     Route: 065

REACTIONS (13)
  - Delirium [Unknown]
  - Insomnia [Unknown]
  - Paranoia [Unknown]
  - Tobacco abuse [Unknown]
  - Overdose [Unknown]
  - Chest pain [Unknown]
  - Dyspnoea [Unknown]
  - Chest discomfort [Unknown]
  - Hyperhidrosis [Unknown]
  - Speech disorder [Unknown]
  - Dry mouth [Unknown]
  - Cognitive disorder [Unknown]
  - Vasospasm [Unknown]
